FAERS Safety Report 12080638 (Version 1)
Quarter: 2016Q1

REPORT INFORMATION
  Report Type: Spontaneous
  Country: FR (occurrence: FR)
  Receive Date: 20160216
  Receipt Date: 20160216
  Transmission Date: 20160526
  Serious: Yes (Death, Other)
  Sender: FDA-Public Use
  Company Number: FR-MYLANLABS-2016M1005518

PATIENT

DRUGS (1)
  1. CIPROFLOXACIN. [Suspect]
     Active Substance: CIPROFLOXACIN
     Indication: MENINGITIS
     Route: 065

REACTIONS (5)
  - Vasculitis cerebral [Fatal]
  - Medication error [Unknown]
  - Product reconstitution issue [Recovered/Resolved]
  - Cerebral venous thrombosis [Fatal]
  - Brain injury [Fatal]
